FAERS Safety Report 4406542-7 (Version None)
Quarter: 2004Q3

REPORT INFORMATION
  Report Type: 
  Country: None (occurrence: None)
  Receive Date: 20040723
  Receipt Date: 20040713
  Transmission Date: 20050211
  Serious: Yes (Hospitalization)
  Sender: FDA-Public Use
  Company Number: US-ROCHE-374390

PATIENT
  Age: 17 Year
  Sex: Female

DRUGS (4)
  1. ACCUTANE [Suspect]
     Indication: DRUG USE FOR UNKNOWN INDICATION
     Route: 065
     Dates: start: 19980115, end: 20000215
  2. ZOLOFT [Concomitant]
     Dates: end: 20000719
  3. ALBUTEROL [Concomitant]
     Route: 055
  4. PRENATAL VITAMIN [Concomitant]

REACTIONS (29)
  - ANAL STENOSIS [None]
  - APLASTIC ANAEMIA [None]
  - BACK PAIN [None]
  - CHALAZION [None]
  - CHANGE OF BOWEL HABIT [None]
  - CHEST WALL PAIN [None]
  - CONSTIPATION [None]
  - CONTUSION [None]
  - DRUG EXPOSURE DURING PREGNANCY [None]
  - HAEMATOCHEZIA [None]
  - HAEMORRHOIDS [None]
  - INGUINAL MASS [None]
  - NAUSEA [None]
  - OTITIS MEDIA [None]
  - PETECHIAE [None]
  - PREGNANCY [None]
  - PROCTALGIA [None]
  - ROAD TRAFFIC ACCIDENT [None]
  - SINUSITIS [None]
  - SPINAL OSTEOARTHRITIS [None]
  - SUPRAVENTRICULAR EXTRASYSTOLES [None]
  - SYNCOPE [None]
  - TEMPOROMANDIBULAR JOINT SYNDROME [None]
  - THROMBOCYTOPENIC PURPURA [None]
  - UPPER RESPIRATORY TRACT INFECTION [None]
  - URINARY TRACT INFECTION [None]
  - UTERINE HAEMORRHAGE [None]
  - VAGINAL HAEMORRHAGE [None]
  - VISUAL DISTURBANCE [None]
